FAERS Safety Report 4915617-5 (Version None)
Quarter: 2006Q1

REPORT INFORMATION
  Report Type: 
  Country: None (occurrence: None)
  Receive Date: 20060217
  Receipt Date: 20060208
  Transmission Date: 20060701
  Serious: Yes (Hospitalization)
  Sender: FDA-Public Use
  Company Number: JP-JNJFOC-20051001254

PATIENT
  Sex: Male

DRUGS (9)
  1. REMICADE [Suspect]
     Route: 042
  2. REMICADE [Suspect]
     Route: 042
  3. REMICADE [Suspect]
     Route: 042
  4. REMICADE [Suspect]
     Indication: RHEUMATOID ARTHRITIS
     Route: 042
  5. PREDONINE [Suspect]
     Indication: DRUG USE FOR UNKNOWN INDICATION
  6. RHEUMATREX [Suspect]
     Indication: RHEUMATOID ARTHRITIS
     Route: 048
  7. PICLONADINE [Concomitant]
     Route: 048
  8. GASTER D [Concomitant]
     Dosage: 2 DOSES= 2 TABLETS
     Route: 048
  9. BONALON [Concomitant]
     Route: 048

REACTIONS (1)
  - PNEUMONITIS CRYPTOCOCCAL [None]
